FAERS Safety Report 18534236 (Version 1)
Quarter: 2020Q4

REPORT INFORMATION
  Report Type: Spontaneous
  Country: US (occurrence: US)
  Receive Date: 20201123
  Receipt Date: 20201123
  Transmission Date: 20210114
  Serious: Yes (Disabling)
  Sender: FDA-Public Use
  Company Number: None

PATIENT
  Age: 67 Year
  Sex: Male
  Weight: 98.1 kg

DRUGS (17)
  1. FLONASE [Concomitant]
     Active Substance: FLUTICASONE PROPIONATE
  2. CPAP [Concomitant]
     Active Substance: DEVICE
  3. VITAMIN B12 [Concomitant]
     Active Substance: CYANOCOBALAMIN
  4. SOTALOL. [Concomitant]
     Active Substance: SOTALOL
  5. BABY ASPIRIN [Concomitant]
     Active Substance: ASPIRIN
  6. LOSARTAN. [Concomitant]
     Active Substance: LOSARTAN
  7. SIMVASTATIN. [Concomitant]
     Active Substance: SIMVASTATIN
  8. ECHINACEA [Concomitant]
     Active Substance: ECHINACEA, UNSPECIFIED
  9. MULTIVITAMIN [Concomitant]
     Active Substance: VITAMINS
  10. FISHOIL [Concomitant]
  11. VITAMIN D#3 [Concomitant]
  12. ZINC. [Concomitant]
     Active Substance: ZINC
  13. COENZYME Q10 [Concomitant]
     Active Substance: DIETARY SUPPLEMENT\UBIDECARENONE
  14. TADALAFIL. [Concomitant]
     Active Substance: TADALAFIL
  15. SYMBICORT [Concomitant]
     Active Substance: BUDESONIDE\FORMOTEROL FUMARATE DIHYDRATE
  16. FINASTERIDE 5MG TABLET [Suspect]
     Active Substance: FINASTERIDE
     Dosage: ?          QUANTITY:1 TABLET(S);?
     Route: 048
     Dates: start: 20160101, end: 20200108
  17. VITAMIN E [Concomitant]
     Active Substance: .ALPHA.-TOCOPHEROL

REACTIONS (7)
  - Ejaculation failure [None]
  - Anorgasmia [None]
  - Atrial fibrillation [None]
  - Erectile dysfunction [None]
  - Asthenia [None]
  - Gynaecomastia [None]
  - Weight increased [None]

NARRATIVE: CASE EVENT DATE: 20180801
